FAERS Safety Report 7034382-1 (Version None)
Quarter: 2010Q4

REPORT INFORMATION
  Report Type: 
  Country: None (occurrence: None)
  Receive Date: 20101008
  Receipt Date: 20101005
  Transmission Date: 20110411
  Serious: Yes (Death, Hospitalization)
  Sender: FDA-Public Use
  Company Number: GB-JNJFOC-20091204108

PATIENT
  Sex: Male

DRUGS (17)
  1. FENTANYL [Suspect]
     Indication: PRODUCT USED FOR UNKNOWN INDICATION
     Route: 062
  2. SUNITINIB MALATE [Suspect]
     Indication: GASTROINTESTINAL STROMAL TUMOUR
     Route: 048
  3. MORPHINE SULFATE [Suspect]
     Indication: PRODUCT USED FOR UNKNOWN INDICATION
     Route: 058
  4. ORAMORPH SR [Suspect]
     Indication: PRODUCT USED FOR UNKNOWN INDICATION
     Route: 048
  5. GABAPENTIN [Suspect]
     Indication: PRODUCT USED FOR UNKNOWN INDICATION
     Route: 048
  6. AMITRIPTYLINE [Concomitant]
     Route: 065
  7. LANSOPRAZOLE [Concomitant]
     Route: 065
  8. PANCREATIN [Concomitant]
     Route: 065
  9. METOCLOPRAMIDE [Concomitant]
     Route: 065
  10. DOCUSATE [Concomitant]
     Route: 065
  11. ZOPICLONE [Concomitant]
     Route: 065
  12. BISACODYL [Concomitant]
     Route: 065
  13. LEVOMEPROMAZINE [Concomitant]
     Route: 065
  14. GLYCEROL [Concomitant]
     Route: 065
  15. DEXAMETHASONE [Concomitant]
     Route: 065
  16. CODANTHRAMER [Concomitant]
     Route: 065
  17. MICROLAX (SODIUM CITRATE, SODIUM LAURYL SULFOACETATE) [Concomitant]
     Route: 065

REACTIONS (2)
  - CONSTIPATION [None]
  - DEATH [None]
